FAERS Safety Report 8444841-2 (Version None)
Quarter: 2012Q2

REPORT INFORMATION
  Report Type: 
  Country: None (occurrence: None)
  Receive Date: 20120618
  Receipt Date: 20120611
  Transmission Date: 20120825
  Serious: Yes (Other)
  Sender: FDA-Public Use
  Company Number: PHHY2012FR051118

PATIENT
  Age: 32 Year
  Sex: Female

DRUGS (4)
  1. KEPPRA [Suspect]
     Dosage: 5 DF, DAILY
  2. TEGRETOL [Suspect]
     Dosage: 400 MG, BID
  3. TOPIRAMATE [Suspect]
     Dosage: 100 MG, BID
  4. NITRAZEPAM [Suspect]
     Dosage: 25 MG, QD

REACTIONS (4)
  - TACHYCARDIA FOETAL [None]
  - PREMATURE DELIVERY [None]
  - MYOCLONIC EPILEPSY [None]
  - MATERNAL EXPOSURE DURING PREGNANCY [None]
